FAERS Safety Report 13448491 (Version 1)
Quarter: 2017Q2

REPORT INFORMATION
  Report Type: Spontaneous
  Country: DE (occurrence: DE)
  Receive Date: 20170417
  Receipt Date: 20170417
  Transmission Date: 20170830
  Serious: Yes (Hospitalization)
  Sender: FDA-Public Use
  Company Number: DE-JNJFOC-20170417546

PATIENT
  Sex: Male
  Weight: 86 kg

DRUGS (2)
  1. TRAMAL [Suspect]
     Active Substance: TRAMADOL
     Indication: PROCEDURAL PAIN
     Route: 048
     Dates: end: 20100723
  2. NOVAMINSULFON [Concomitant]
     Active Substance: METAMIZOLE
     Indication: PROCEDURAL PAIN
     Route: 065
     Dates: end: 20100723

REACTIONS (1)
  - Liver function test increased [Not Recovered/Not Resolved]
